FAERS Safety Report 8806959 (Version 1)
Quarter: 2012Q4

REPORT INFORMATION
  Report Type: 
  Country: US (occurrence: US)
  Receive Date: 20120925
  Receipt Date: 20120925
  Transmission Date: 20130627
  Serious: Yes (Other)
  Sender: FDA-Public Use
  Company Number: US-VERTEX PHARMACEUTICAL INC.-AE-2011-005015

PATIENT
  Age: 52 Year
  Sex: Male

DRUGS (4)
  1. VX-950 [Suspect]
     Indication: HEPATITIS C
     Dosage: UNK
     Route: 048
     Dates: start: 20111024, end: 20120116
  2. RIBASPHERE [Concomitant]
     Indication: HEPATITIS C
     Dosage: 600 mg, UNK
     Route: 048
     Dates: start: 20111024
  3. PEGASYS [Concomitant]
     Indication: HEPATITIS C
     Dosage: 180 UNK, UNK
     Route: 058
     Dates: start: 20111024
  4. PEGASYS [Concomitant]
     Indication: HEPATITIS C

REACTIONS (7)
  - Suicidal ideation [Not Recovered/Not Resolved]
  - Mood swings [Not Recovered/Not Resolved]
  - Emotional disorder [Not Recovered/Not Resolved]
  - Feeling abnormal [Not Recovered/Not Resolved]
  - Chest pain [Not Recovered/Not Resolved]
  - Aphonia [Recovered/Resolved]
  - Dyspnoea [Not Recovered/Not Resolved]
